FAERS Safety Report 4891392-8 (Version None)
Quarter: 2005Q4

REPORT INFORMATION
  Report Type: 
  Country: None (occurrence: None)
  Receive Date: 20051223
  Receipt Date: 20051014
  Transmission Date: 20060501
  Serious: No
  Sender: FDA-Public Use
  Company Number: 218656

PATIENT
  Age: 51 Year
  Sex: Female
  Weight: 71.2 kg

DRUGS (1)
  1. AVASTIN [Suspect]
     Indication: COLORECTAL CANCER
     Dosage: 900 MG, Q2W, INTRAVENOUS
     Route: 042
     Dates: start: 20040907

REACTIONS (1)
  - RASH [None]
